FAERS Safety Report 8786192 (Version 1)
Quarter: 2012Q4

REPORT INFORMATION
  Report Type: 
  Country: US (occurrence: US)
  Receive Date: 20120914
  Receipt Date: 20120914
  Transmission Date: 20130627
  Serious: No
  Sender: FDA-Public Use
  Company Number: US-ASTRAZENECA-2012SE65006

PATIENT
  Age: 78 Year
  Sex: Male
  Weight: 77.1 kg

DRUGS (5)
  1. CRESTOR [Suspect]
     Indication: HYPERLIPIDAEMIA
     Route: 048
     Dates: start: 201208
  2. FLOMAX [Concomitant]
     Indication: PROSTATOMEGALY
  3. PREVACID [Concomitant]
  4. ALPRAZOLAM [Concomitant]
  5. ZETIA [Concomitant]
     Indication: BLOOD CHOLESTEROL ABNORMAL

REACTIONS (2)
  - Urine abnormality [Unknown]
  - Abnormal faeces [Unknown]
